FAERS Safety Report 25208781 (Version 1)
Quarter: 2025Q2

REPORT INFORMATION
  Report Type: Spontaneous
  Country: US (occurrence: US)
  Receive Date: 20250417
  Receipt Date: 20250417
  Transmission Date: 20250717
  Serious: No
  Sender: BRISTOL MYERS SQUIBB
  Company Number: US-BRISTOL-MYERS SQUIBB COMPANY-2025-049491

PATIENT
  Age: 35 Year
  Sex: Male
  Weight: 90.72 kg

DRUGS (3)
  1. COBENFY [Suspect]
     Active Substance: TROSPIUM CHLORIDE\XANOMELINE
     Indication: Schizoaffective disorder
     Dosage: DOSE: 125MG/30MG
     Route: 048
     Dates: start: 202502
  2. COBENFY [Suspect]
     Active Substance: TROSPIUM CHLORIDE\XANOMELINE
     Indication: Bipolar disorder
  3. COBENFY [Suspect]
     Active Substance: TROSPIUM CHLORIDE\XANOMELINE
     Indication: Schizophrenia

REACTIONS (4)
  - Communication disorder [Unknown]
  - Hyperhidrosis [Unknown]
  - Poverty of speech [Unknown]
  - Therapeutic product effect incomplete [Unknown]
